FAERS Safety Report 7218148-5 (Version None)
Quarter: 2010Q4

REPORT INFORMATION
  Report Type: 
  Country: None (occurrence: None)
  Receive Date: 20101230
  Receipt Date: 20101225
  Transmission Date: 20110411
  Serious: Yes (Other)
  Sender: FDA-Public Use
  Company Number: CL-279-2010

PATIENT
  Age: 10 Year
  Sex: Female

DRUGS (1)
  1. CIPROFLOXACIN [Suspect]
     Indication: BACTERAEMIA

REACTIONS (4)
  - BACTERAEMIA [None]
  - DRUG RESISTANCE [None]
  - PLEURAL EFFUSION [None]
  - TYPHOID FEVER [None]
